FAERS Safety Report 23182594 (Version 1)
Quarter: 2023Q4

REPORT INFORMATION
  Report Type: Spontaneous
  Country: US (occurrence: US)
  Receive Date: 20231114
  Receipt Date: 20231114
  Transmission Date: 20240110
  Serious: Yes (Death)
  Sender: FDA-Public Use
  Company Number: US-PFIZER INC-PV202300156001

PATIENT
  Age: 88 Year
  Sex: Male

DRUGS (2)
  1. BRAFTOVI [Suspect]
     Active Substance: ENCORAFENIB
     Dosage: 450 MG, DAILY
     Route: 048
  2. MEKTOVI [Suspect]
     Active Substance: BINIMETINIB
     Dosage: 30 MG, 2X/DAY
     Route: 048

REACTIONS (1)
  - Death [Fatal]
